FAERS Safety Report 21763541 (Version 1)
Quarter: 2022Q4

REPORT INFORMATION
  Report Type: Spontaneous
  Country: US (occurrence: US)
  Receive Date: 20221221
  Receipt Date: 20221221
  Transmission Date: 20230113
  Serious: Yes (Other)
  Sender: FDA-Public Use
  Company Number: US-AMGEN-USASP2022217231

PATIENT
  Sex: Female

DRUGS (2)
  1. KANJINTI [Suspect]
     Active Substance: TRASTUZUMAB-ANNS
     Indication: Brain cancer metastatic
     Dosage: 483 MILLIGRAM
     Route: 065
  2. KANJINTI [Suspect]
     Active Substance: TRASTUZUMAB-ANNS
     Indication: Off label use

REACTIONS (2)
  - General physical health deterioration [Unknown]
  - Off label use [Unknown]
